FAERS Safety Report 9734338 (Version 1)
Quarter: 2013Q4

REPORT INFORMATION
  Report Type: Spontaneous
  Country: FR (occurrence: FR)
  Receive Date: 20131206
  Receipt Date: 20131206
  Transmission Date: 20140711
  Serious: Yes (Other)
  Sender: FDA-Public Use
  Company Number: FR-AMGEN-FRASP2013085022

PATIENT
  Age: 77 Year
  Sex: Male

DRUGS (6)
  1. NEUPOGEN [Suspect]
     Indication: PROPHYLAXIS
     Dosage: 1 INJ/DAY DURING 3 DAYS EVERY MONTHS (3DF, 1 IN 1 MONTH)
     Route: 030
     Dates: start: 20130515
  2. RITUXIMAB [Concomitant]
     Indication: LYMPHOCYTIC LYMPHOMA
     Dosage: UNK
  3. FLUDARABINE [Concomitant]
     Indication: LYMPHOCYTIC LYMPHOMA
     Dosage: UNK
  4. CYCLOPHOSPHAMIDE [Concomitant]
     Indication: LYMPHOCYTIC LYMPHOMA
     Dosage: UNK
  5. PERMIXON [Concomitant]
     Dosage: UNK
  6. XYZALL [Concomitant]
     Dosage: UNK

REACTIONS (3)
  - Cutaneous lupus erythematosus [Unknown]
  - Oedema peripheral [Unknown]
  - Petechiae [Unknown]
